FAERS Safety Report 7842521-5 (Version None)
Quarter: 2011Q4

REPORT INFORMATION
  Report Type: 
  Country: None (occurrence: None)
  Receive Date: 20111025
  Receipt Date: 20111021
  Transmission Date: 20120403
  Serious: Yes (Death)
  Sender: FDA-Public Use
  Company Number: PHHO2011FR17802

PATIENT
  Sex: Male
  Weight: 57 kg

DRUGS (1)
  1. IMATINIB MESYLATE [Suspect]
     Indication: ACUTE LYMPHOCYTIC LEUKAEMIA
     Dosage: UNK

REACTIONS (1)
  - GRAFT VERSUS HOST DISEASE [None]
